FAERS Safety Report 15134577 (Version 1)
Quarter: 2018Q3

REPORT INFORMATION
  Report Type: Spontaneous
  Country: AU (occurrence: AU)
  Receive Date: 20180712
  Receipt Date: 20180712
  Transmission Date: 20181010
  Serious: Yes (Other)
  Sender: FDA-Public Use
  Company Number: AU-009507513-1807AUS001586

PATIENT
  Age: 49 Year

DRUGS (3)
  1. SOVALDI [Suspect]
     Active Substance: SOFOSBUVIR
     Indication: CHRONIC HEPATITIS C
     Dosage: UNK
  2. RIBAVIRIN. [Suspect]
     Active Substance: RIBAVIRIN
     Dosage: 400 (DOSAGE UNITS NOT SPECIFIED)
  3. DAKLINZA [Suspect]
     Active Substance: DACLATASVIR
     Dosage: UNK

REACTIONS (2)
  - Drug ineffective [Unknown]
  - Hepatitis C [Unknown]
